FAERS Safety Report 12124542 (Version 1)
Quarter: 2016Q1

REPORT INFORMATION
  Report Type: Spontaneous
  Country: US (occurrence: None)
  Receive Date: 20160226
  Receipt Date: 20160226
  Transmission Date: 20160526
  Serious: No
  Sender: FDA-Public Use
  Company Number: None

PATIENT
  Age: 18 Year
  Sex: Female
  Weight: 59.1 kg

DRUGS (2)
  1. PANTOPRAZOLE [Suspect]
     Active Substance: PANTOPRAZOLE SODIUM
     Indication: GASTROOESOPHAGEAL REFLUX PROPHYLAXIS
     Route: 048
     Dates: start: 20160129, end: 20160212
  2. ACETAMINOPHEN/OXYCODONE [Suspect]
     Active Substance: ACETAMINOPHEN\OXYCODONE HYDROCHLORIDE
     Indication: PAIN
     Dosage: 10/325 MG, PO
     Route: 048
     Dates: start: 20160129, end: 20160130

REACTIONS (6)
  - Urticaria [None]
  - Eye pruritus [None]
  - Ocular hyperaemia [None]
  - Pain [None]
  - Eye irritation [None]
  - Pruritus [None]

NARRATIVE: CASE EVENT DATE: 20160130
